FAERS Safety Report 10025435 (Version 1)
Quarter: 2014Q1

REPORT INFORMATION
  Report Type: Spontaneous
  Country: NL (occurrence: NL)
  Receive Date: 20140320
  Receipt Date: 20140320
  Transmission Date: 20141002
  Serious: Yes (Other)
  Sender: FDA-Public Use
  Company Number: NL-BAXTER-2014BAX014091

PATIENT
  Age: 58 Year
  Sex: Female

DRUGS (11)
  1. KIOVIG 100 MG/ML OPLOSSING VOOR INFUSIE (10 G/100 ML) [Suspect]
     Indication: IMMUNE TOLERANCE INDUCTION
     Dosage: ONE DAY PREOPERATIVELY
     Route: 065
  2. RITUXIMAB [Suspect]
     Indication: IMMUNE TOLERANCE INDUCTION
     Dosage: 4 WEEKS BEFORE TRANSPLANTATION
     Route: 065
  3. TACROLIMUS [Suspect]
     Indication: IMMUNE TOLERANCE INDUCTION
     Dosage: TWO WEEKS BEFORE TRANSPLANTATION
     Route: 065
  4. MYCOPHENOLATE MOFETIL [Suspect]
     Indication: IMMUNE TOLERANCE INDUCTION
     Dosage: TWO WEEKS BEFORE TRANSPLANTATION
     Route: 065
  5. PREDNISONE [Suspect]
     Indication: IMMUNE TOLERANCE INDUCTION
     Dosage: TWO WEEKS BEFORE TRANSPLANTATION
     Route: 065
  6. VALGANCICLOVIR [Concomitant]
     Indication: ANTIVIRAL PROPHYLAXIS
     Route: 065
  7. CIPROFLOXACIN [Concomitant]
     Indication: URINARY TRACT INFECTION
     Route: 065
  8. CEFTAZIDIME [Concomitant]
     Indication: PRODUCT USED FOR UNKNOWN INDICATION
     Route: 065
  9. CIPROFLOXACIN [Concomitant]
     Indication: PRODUCT USED FOR UNKNOWN INDICATION
     Route: 065
  10. IMIPENEM [Concomitant]
     Indication: PRODUCT USED FOR UNKNOWN INDICATION
     Route: 065
  11. METHYLPREDNISOLONE [Concomitant]
     Indication: PROPHYLAXIS AGAINST TRANSPLANT REJECTION
     Route: 065

REACTIONS (4)
  - Transplant rejection [Unknown]
  - Urosepsis [Unknown]
  - Diabetes mellitus [Unknown]
  - Serratia infection [Unknown]
